FAERS Safety Report 4503771-9 (Version None)
Quarter: 2004Q4

REPORT INFORMATION
  Report Type: 
  Country: None (occurrence: None)
  Receive Date: 20041115
  Receipt Date: 20041101
  Transmission Date: 20050328
  Serious: Yes (Other)
  Sender: FDA-Public Use
  Company Number: PANC00304003962

PATIENT
  Age: 67 Year
  Sex: Male
  Weight: 44.7 kg

DRUGS (8)
  1. CREON [Suspect]
     Indication: PANCREATIC ENZYMES ABNORMAL
     Dosage: 1 GRAM(S) ORAL
     Route: 048
     Dates: start: 19970203, end: 19980203
  2. MILLACT (TILACTASE) [Concomitant]
  3. CALCIUM LACTATE (CALCIUM LACTATE) [Concomitant]
  4. FERROMIA (FERROUS CITRATE) [Concomitant]
  5. ONEALFA (ALFACALCIDOL) [Concomitant]
  6. METHYCOBAL (MECOBALAMIN) [Concomitant]
  7. OPIUM TINCTURE (OPIUM TINCTURE) [Concomitant]
  8. ELENTAL [Concomitant]

REACTIONS (10)
  - ANOREXIA [None]
  - IMPLANT SITE INFECTION [None]
  - MALAISE [None]
  - NAUSEA [None]
  - OEDEMA PERIPHERAL [None]
  - PO2 DECREASED [None]
  - PULMONARY OEDEMA [None]
  - SOMNOLENCE [None]
  - SYSTEMIC CANDIDA [None]
  - VOMITING [None]
